FAERS Safety Report 9619353 (Version 2)
Quarter: 2015Q2

REPORT INFORMATION
  Report Type: Spontaneous
  Country: US (occurrence: US)
  Receive Date: 20131014
  Receipt Date: 20150521
  Transmission Date: 20150821
  Serious: Yes (Hospitalization, Other)
  Sender: FDA-Public Use
  Company Number: US-BAYER-2013-123728

PATIENT
  Age: 39 Year
  Sex: Female

DRUGS (5)
  1. YASMIN [Suspect]
     Active Substance: DROSPIRENONE\ETHINYL ESTRADIOL
     Dosage: UNK
     Dates: start: 2006, end: 20120402
  2. OCELLA [Suspect]
     Active Substance: DROSPIRENONE\ETHINYL ESTRADIOL
     Dosage: UNK
     Dates: end: 20120402
  3. DICLOFEN [Concomitant]
     Active Substance: DICLOFENAC SODIUM
  4. TRAMADOL [Concomitant]
     Active Substance: TRAMADOL
  5. BACLOFEN. [Concomitant]
     Active Substance: BACLOFEN

REACTIONS (8)
  - Injury [None]
  - Anxiety [None]
  - Cholecystectomy [None]
  - Emotional distress [None]
  - Anhedonia [None]
  - Deep vein thrombosis [None]
  - Pain [None]
  - General physical health deterioration [None]

NARRATIVE: CASE EVENT DATE: 20120402
